FAERS Safety Report 4791943-8 (Version None)
Quarter: 2005Q4

REPORT INFORMATION
  Report Type: 
  Country: None (occurrence: None)
  Receive Date: 20051005
  Receipt Date: 20050916
  Transmission Date: 20060501
  Serious: Yes (Other)
  Sender: FDA-Public Use
  Company Number: FR_050807005

PATIENT
  Age: 66 Year
  Sex: Male
  Weight: 75 kg

DRUGS (1)
  1. CIALIS [Suspect]
     Indication: ERECTILE DYSFUNCTION
     Dosage: 0.5 DSG FORM/3 WEEK
     Dates: start: 20050501

REACTIONS (2)
  - RETINAL VEIN OCCLUSION [None]
  - VISUAL DISTURBANCE [None]
